FAERS Safety Report 10433311 (Version 1)
Quarter: 2014Q3

REPORT INFORMATION
  Report Type: Spontaneous
  Country: US (occurrence: None)
  Receive Date: 20140904
  Receipt Date: 20140904
  Transmission Date: 20150326
  Serious: Yes (Hospitalization)
  Sender: FDA-Public Use
  Company Number: None

PATIENT
  Age: 65 Year
  Sex: Female
  Weight: 77.3 kg

DRUGS (3)
  1. BELATACEPT [Suspect]
     Active Substance: BELATACEPT
     Indication: RENAL TRANSPLANT
     Dosage: 412. 5 MG, Q4 WEEKS, IV (LAST DOSE)
     Route: 042
     Dates: start: 20140820
  2. CELLCEPT [Suspect]
     Active Substance: MYCOPHENOLATE MOFETIL\MYCOPHENOLATE MOFETIL HYDROCHLORIDE
     Indication: RENAL TRANSPLANT
     Route: 048
     Dates: start: 20131207
  3. BELATACEPT INFUSION [Concomitant]

REACTIONS (7)
  - Klebsiella test positive [None]
  - Cardiac failure congestive [None]
  - Escherichia urinary tract infection [None]
  - Pain [None]
  - Chills [None]
  - Pyrexia [None]
  - Fall [None]

NARRATIVE: CASE EVENT DATE: 20140827
